FAERS Safety Report 8619241-2 (Version None)
Quarter: 2012Q3

REPORT INFORMATION
  Report Type: 
  Country: None (occurrence: None)
  Receive Date: 20120824
  Receipt Date: 20120814
  Transmission Date: 20120928
  Serious: Yes (Hospitalization)
  Sender: FDA-Public Use
  Company Number: US-NOVOPROD-358379

PATIENT
  Age: 66 Year
  Sex: Female
  Weight: 87.982 kg

DRUGS (10)
  1. FLUTICASONE PROPIONATE [Concomitant]
     Indication: HYPERSENSITIVITY
  2. OXYCODONE/ACETAMINOPHEN [Concomitant]
     Indication: PAIN
     Route: 048
  3. SYNTHROID [Concomitant]
     Indication: HYPOTHYROIDISM
     Route: 048
  4. EPRAZOLE [Concomitant]
     Indication: PRODUCT USED FOR UNKNOWN INDICATION
     Route: 048
  5. HYZAAR [Concomitant]
     Indication: HYPERTENSION
     Route: 048
  6. SINGULAIR [Concomitant]
     Indication: HYPERSENSITIVITY
  7. VICTOZA [Suspect]
     Indication: TYPE 2 DIABETES MELLITUS
     Dosage: 1.8 MG, QD
     Route: 058
     Dates: start: 20111101
  8. SIMVASTATIN [Concomitant]
     Indication: LIPIDS INCREASED
  9. METFORMIN HCL [Concomitant]
     Indication: TYPE 2 DIABETES MELLITUS
     Route: 048
  10. CARVEDILOL [Concomitant]
     Indication: HYPERTENSION
     Dosage: 3.1 MG, UNK
     Route: 048

REACTIONS (3)
  - DIARRHOEA [None]
  - ABDOMINAL HERNIA [None]
  - NEPHROLITHIASIS [None]
